FAERS Safety Report 5513521-5 (Version None)
Quarter: 2007Q4

REPORT INFORMATION
  Report Type: 
  Country: None (occurrence: None)
  Receive Date: 20071108
  Receipt Date: 20071102
  Transmission Date: 20080405
  Serious: Yes (Life-Threatening, Other)
  Sender: FDA-Public Use
  Company Number: 2006SP008987

PATIENT
  Age: 71 Year
  Sex: Male
  Weight: 59 kg

DRUGS (6)
  1. PEG-INTRON [Suspect]
     Indication: HEPATITIS C
     Dosage: 80 MCG;QW;SC
     Route: 058
     Dates: start: 20060118, end: 20061216
  2. REBETOL [Suspect]
     Indication: HEPATITIS C
     Dosage: 600 MG;QD;PO, 400 MG;QD;PO
     Route: 048
     Dates: start: 20060118, end: 20060207
  3. REBETOL [Suspect]
     Indication: HEPATITIS C
     Dosage: 600 MG;QD;PO, 400 MG;QD;PO
     Route: 048
     Dates: start: 20060208, end: 20061216
  4. PROMAC [Concomitant]
  5. DOXAZOSIN MESYLATE [Concomitant]
  6. TANATRIL [Concomitant]

REACTIONS (4)
  - ANAEMIA [None]
  - METASTASES TO LIVER [None]
  - METASTASES TO LYMPH NODES [None]
  - PANCREATIC CARCINOMA METASTATIC [None]
